FAERS Safety Report 15239147 (Version 1)
Quarter: 2018Q4

REPORT INFORMATION
  Report Type: Spontaneous
  Country: US (occurrence: US)
  Receive Date: 20180803
  Receipt Date: 20180803
  Transmission Date: 20190204
  Serious: No
  Sender: FDA-Public Use
  Company Number: US-BAUSCH-BL-2017-031117

PATIENT
  Age: 51 Year
  Sex: Female

DRUGS (4)
  1. NU-DERM BLENDER [Suspect]
     Active Substance: HYDROQUINONE
     Indication: THERAPEUTIC SKIN CARE TOPICAL
     Dosage: USING THE PRODUCT FOR OVER A YEAR
     Route: 061
     Dates: end: 201710
  2. TRETINOIN. [Suspect]
     Active Substance: TRETINOIN
     Indication: PIGMENTATION DISORDER
     Route: 065
     Dates: end: 201710
  3. TRETINOIN. [Suspect]
     Active Substance: TRETINOIN
     Indication: PROPHYLAXIS AGAINST SOLAR RADIATION
  4. OBAGI PROFESSIONAL-C SERUM 15 PERCENT [Suspect]
     Active Substance: COSMETICS
     Indication: THERAPEUTIC SKIN CARE TOPICAL
     Dosage: USING THE PRODUCT FOR OVER A YEAR
     Route: 061
     Dates: end: 201710

REACTIONS (3)
  - Rash [Recovered/Resolved]
  - Product colour issue [Unknown]
  - Product physical consistency issue [Unknown]

NARRATIVE: CASE EVENT DATE: 201710
